FAERS Safety Report 16084895 (Version 1)
Quarter: 2019Q2

REPORT INFORMATION
  Report Type: Spontaneous
  Country: US (occurrence: US)
  Receive Date: 20190318
  Receipt Date: 20190318
  Transmission Date: 20190711
  Serious: Yes (Hospitalization)
  Sender: FDA-Public Use
  Company Number: None

PATIENT
  Age: 63 Year
  Sex: Female

DRUGS (1)
  1. IMATINIB. [Suspect]
     Active Substance: IMATINIB MESYLATE
     Indication: CHRONIC MYELOID LEUKAEMIA
     Route: 048
     Dates: start: 20190212, end: 20190223

REACTIONS (6)
  - Rash generalised [None]
  - Abdominal discomfort [None]
  - Eating disorder [None]
  - Hypoaesthesia [None]
  - Bowel movement irregularity [None]
  - Rash erythematous [None]

NARRATIVE: CASE EVENT DATE: 20190214
